FAERS Safety Report 13719778 (Version 1)
Quarter: 2017Q3

REPORT INFORMATION
  Report Type: Spontaneous
  Country: US (occurrence: US)
  Receive Date: 20170705
  Receipt Date: 20170705
  Transmission Date: 20171127
  Serious: Yes (Other)
  Sender: FDA-Public Use
  Company Number: PHHY2017US095230

PATIENT
  Sex: Male

DRUGS (4)
  1. ARSENIC TRIOXIDE [Suspect]
     Active Substance: ARSENIC TRIOXIDE
     Indication: METASTATIC NEOPLASM
  2. ITRACONAZOLE. [Suspect]
     Active Substance: ITRACONAZOLE
     Indication: BASAL CELL CARCINOMA
     Dosage: 400 MG, QD
     Route: 048
  3. ITRACONAZOLE. [Suspect]
     Active Substance: ITRACONAZOLE
     Indication: METASTATIC NEOPLASM
  4. ARSENIC TRIOXIDE [Suspect]
     Active Substance: ARSENIC TRIOXIDE
     Indication: BASAL CELL CARCINOMA
     Dosage: 0.3 MG/KG, QD; FOR 5 DAYS EVERY 28 DAYS
     Route: 042

REACTIONS (2)
  - Off label use [Unknown]
  - Atrial flutter [Recovered/Resolved]
